FAERS Safety Report 6826945-0 (Version None)
Quarter: 2010Q3

REPORT INFORMATION
  Report Type: 
  Country: None (occurrence: None)
  Receive Date: 20100709
  Receipt Date: 20100706
  Transmission Date: 20110219
  Serious: Yes (Other)
  Sender: FDA-Public Use
  Company Number: US-WYE-H16010810

PATIENT

DRUGS (1)
  1. SIROLIMUS [Suspect]
     Indication: NEUROFIBROMATOSIS
     Dosage: 0.8 MG/M^2/DOSE Q12H TO MAINTAIN LEVELS BETWEEN 10-15 MG/ML
     Route: 048

REACTIONS (2)
  - ACUTE RESPIRATORY DISTRESS SYNDROME [None]
  - RESPIRATORY SYNCYTIAL VIRUS BRONCHIOLITIS [None]
